FAERS Safety Report 12417869 (Version 1)
Quarter: 2016Q2

REPORT INFORMATION
  Report Type: Spontaneous
  Country: FR (occurrence: FR)
  Receive Date: 20160531
  Receipt Date: 20160531
  Transmission Date: 20160815
  Serious: Yes (Other)
  Sender: FDA-Public Use
  Company Number: FR-ROCHE-1765798

PATIENT
  Age: 56 Year
  Sex: Female

DRUGS (31)
  1. CORTANCYL [Suspect]
     Active Substance: PREDNISONE
     Route: 048
     Dates: start: 20160517
  2. IFOSFAMIDE EG [Suspect]
     Active Substance: IFOSFAMIDE
     Indication: B-CELL LYMPHOMA
     Route: 042
     Dates: start: 20160516
  3. MITOXANTRONE [Suspect]
     Active Substance: MITOXANTRONE HYDROCHLORIDE
     Indication: B-CELL LYMPHOMA
  4. GRANISETRON [Suspect]
     Active Substance: GRANISETRON
     Route: 065
     Dates: start: 20160517
  5. GRANISETRON [Suspect]
     Active Substance: GRANISETRON
     Route: 065
     Dates: start: 20160518
  6. MABTHERA [Suspect]
     Active Substance: RITUXIMAB
     Indication: NON-HODGKIN^S LYMPHOMA
     Route: 042
     Dates: start: 20160415, end: 20160415
  7. IFOSFAMIDE EG [Suspect]
     Active Substance: IFOSFAMIDE
     Route: 042
     Dates: start: 20160518
  8. GRANISETRON [Suspect]
     Active Substance: GRANISETRON
     Route: 065
     Dates: start: 20160516
  9. IFOSFAMIDE EG [Suspect]
     Active Substance: IFOSFAMIDE
     Indication: NON-HODGKIN^S LYMPHOMA
     Route: 042
     Dates: start: 20160415, end: 20160419
  10. UROMITEXAN [Suspect]
     Active Substance: MESNA
     Route: 040
     Dates: start: 20160517
  11. UROMITEXAN [Suspect]
     Active Substance: MESNA
     Route: 040
     Dates: start: 20160518
  12. UROMITEXAN [Suspect]
     Active Substance: MESNA
     Route: 040
     Dates: start: 20160519
  13. HALDOL DECANOATE [Suspect]
     Active Substance: HALOPERIDOL DECANOATE
     Indication: PROPHYLAXIS
     Dosage: LONG-TERM TREATMENT
     Route: 030
     Dates: end: 20160415
  14. ALDACTONE [Concomitant]
     Active Substance: SPIRONOLACTONE
     Route: 065
     Dates: start: 20160414
  15. NAVELBINE [Suspect]
     Active Substance: VINORELBINE TARTRATE
     Indication: B-CELL LYMPHOMA
  16. CORTANCYL [Suspect]
     Active Substance: PREDNISONE
     Route: 048
     Dates: start: 20160518
  17. IFOSFAMIDE EG [Suspect]
     Active Substance: IFOSFAMIDE
     Route: 042
     Dates: start: 20160517
  18. NAVELBINE [Suspect]
     Active Substance: VINORELBINE TARTRATE
     Indication: NON-HODGKIN^S LYMPHOMA
     Route: 042
     Dates: start: 20160415, end: 20160415
  19. CORTANCYL [Suspect]
     Active Substance: PREDNISONE
     Indication: PRODUCT USED FOR UNKNOWN INDICATION
     Route: 048
     Dates: start: 20160415, end: 20160419
  20. CORTANCYL [Suspect]
     Active Substance: PREDNISONE
     Route: 048
     Dates: start: 20160519
  21. GRANISETRON [Suspect]
     Active Substance: GRANISETRON
     Route: 065
     Dates: start: 20160519
  22. MABTHERA [Suspect]
     Active Substance: RITUXIMAB
     Indication: B-CELL LYMPHOMA
  23. CORTANCYL [Suspect]
     Active Substance: PREDNISONE
     Route: 048
     Dates: start: 20160516
  24. PYOSTACINE [Suspect]
     Active Substance: PRISTINAMYCIN
     Indication: PRODUCT USED FOR UNKNOWN INDICATION
     Route: 048
     Dates: start: 20160414, end: 20160418
  25. GRANISETRON [Suspect]
     Active Substance: GRANISETRON
     Indication: PRODUCT USED FOR UNKNOWN INDICATION
     Route: 065
     Dates: start: 20160415, end: 20160419
  26. METHYLMETHIONINE SULFONIUM CHLORIDE [Concomitant]
     Active Substance: METHYLMETHIONINE SULFONIUM CHLORIDE
     Route: 065
     Dates: start: 20160419
  27. IFOSFAMIDE EG [Suspect]
     Active Substance: IFOSFAMIDE
     Route: 042
     Dates: start: 20160519
  28. MITOXANTRONE [Suspect]
     Active Substance: MITOXANTRONE HYDROCHLORIDE
     Indication: NON-HODGKIN^S LYMPHOMA
     Route: 042
     Dates: start: 20160415, end: 20160415
  29. UROMITEXAN [Suspect]
     Active Substance: MESNA
     Indication: PROPHYLAXIS
     Route: 040
     Dates: start: 20160415, end: 20160419
  30. UROMITEXAN [Suspect]
     Active Substance: MESNA
     Route: 040
     Dates: start: 20160516
  31. METHYLMETHIONINE SULFONIUM CHLORIDE [Concomitant]
     Active Substance: METHYLMETHIONINE SULFONIUM CHLORIDE
     Route: 065
     Dates: start: 20160420

REACTIONS (1)
  - Confusional state [Recovered/Resolved]

NARRATIVE: CASE EVENT DATE: 20160417
